FAERS Safety Report 24682822 (Version 1)
Quarter: 2024Q4

REPORT INFORMATION
  Report Type: Spontaneous
  Country: PL (occurrence: PL)
  Receive Date: 20241201
  Receipt Date: 20241201
  Transmission Date: 20250115
  Serious: Yes (Other)
  Sender: SANOFI AVENTIS
  Company Number: None

PATIENT
  Age: 71 Year
  Sex: Female
  Weight: 52 kg

DRUGS (60)
  1. RIFAMPIN [Suspect]
     Active Substance: RIFAMPIN
     Indication: Complication associated with device
     Dosage: 0.3 G
     Route: 065
     Dates: start: 20200425, end: 20200622
  2. RIFAMPIN [Suspect]
     Active Substance: RIFAMPIN
     Indication: Fall
  3. ALBUMIN HUMAN [Concomitant]
     Active Substance: ALBUMIN HUMAN
     Indication: Complication associated with device
     Dosage: 200 MG/ML
     Route: 065
     Dates: start: 20200425, end: 20200622
  4. ALBUMIN HUMAN [Concomitant]
     Active Substance: ALBUMIN HUMAN
     Indication: Fall
  5. Aldan [Concomitant]
     Indication: Complication associated with device
     Dosage: 5 MG
     Route: 065
     Dates: start: 20200425, end: 20200622
  6. Aldan [Concomitant]
     Indication: Fall
  7. ATROPINE SULFATE [Concomitant]
     Active Substance: ATROPINE SULFATE
     Indication: Complication associated with device
     Dosage: UNK
     Route: 065
     Dates: start: 20200425, end: 20200622
  8. ATROPINE SULFATE [Concomitant]
     Active Substance: ATROPINE SULFATE
     Indication: Fall
  9. ENOXAPARIN SODIUM [Concomitant]
     Active Substance: ENOXAPARIN SODIUM
     Indication: Complication associated with device
     Dosage: UNK
     Route: 058
     Dates: start: 20200425, end: 20200622
  10. ENOXAPARIN SODIUM [Concomitant]
     Active Substance: ENOXAPARIN SODIUM
     Indication: Fall
  11. CONTROLOC [Concomitant]
     Active Substance: PANTOPRAZOLE SODIUM
     Indication: Complication associated with device
     Dosage: UNK
     Route: 042
     Dates: start: 20200425, end: 20200622
  12. CONTROLOC [Concomitant]
     Active Substance: PANTOPRAZOLE SODIUM
     Indication: Fall
  13. DEXAK [Concomitant]
     Indication: Complication associated with device
     Dosage: UNK
     Route: 065
     Dates: start: 20200425, end: 20200622
  14. DEXAK [Concomitant]
     Indication: Fall
  15. DONEPEZIL HYDROCHLORIDE [Concomitant]
     Active Substance: DONEPEZIL HYDROCHLORIDE
     Indication: Complication associated with device
     Dosage: 5 MG
     Route: 065
     Dates: start: 20200425, end: 20200622
  16. DONEPEZIL HYDROCHLORIDE [Concomitant]
     Active Substance: DONEPEZIL HYDROCHLORIDE
     Indication: Fall
  17. DONEPEZIL HYDROCHLORIDE [Concomitant]
     Active Substance: DONEPEZIL HYDROCHLORIDE
     Indication: Complication associated with device
     Dosage: 5 MG
     Route: 065
     Dates: start: 20200425, end: 20200622
  18. DONEPEZIL HYDROCHLORIDE [Concomitant]
     Active Substance: DONEPEZIL HYDROCHLORIDE
     Indication: Fall
  19. VANCOMYCIN HYDROCHLORIDE [Concomitant]
     Active Substance: VANCOMYCIN HYDROCHLORIDE
     Indication: Complication associated with device
     Dosage: 1000 MG
     Route: 065
     Dates: start: 20200425, end: 20200622
  20. VANCOMYCIN HYDROCHLORIDE [Concomitant]
     Active Substance: VANCOMYCIN HYDROCHLORIDE
     Indication: Fall
  21. PREDNISONE [Concomitant]
     Active Substance: PREDNISONE
     Indication: Complication associated with device
     Dosage: 20 MG
     Route: 065
     Dates: start: 20200425, end: 20200622
  22. PREDNISONE [Concomitant]
     Active Substance: PREDNISONE
     Indication: Fall
  23. ETOMIDATE [Concomitant]
     Active Substance: ETOMIDATE
     Indication: Complication associated with device
     Dosage: UNK
     Route: 065
     Dates: start: 20200425, end: 20200622
  24. ETOMIDATE [Concomitant]
     Active Substance: ETOMIDATE
     Indication: Fall
  25. FAXOLET [Concomitant]
     Indication: Complication associated with device
     Dosage: 75 MG
     Route: 065
     Dates: start: 20200425, end: 20200622
  26. FAXOLET [Concomitant]
     Indication: Fall
  27. FENTANYL [Concomitant]
     Active Substance: FENTANYL
     Indication: Complication associated with device
     Dosage: UNK
     Route: 065
     Dates: start: 20200425, end: 20200622
  28. FENTANYL [Concomitant]
     Active Substance: FENTANYL
     Indication: Fall
  29. OMEPRAZOLE [Concomitant]
     Active Substance: OMEPRAZOLE
     Indication: Complication associated with device
     Dosage: 20.000MG
     Route: 065
     Dates: start: 20200425, end: 20200622
  30. OMEPRAZOLE [Concomitant]
     Active Substance: OMEPRAZOLE
     Indication: Fall
  31. POTASSIUM CHLORIDE [Concomitant]
     Active Substance: POTASSIUM CHLORIDE
     Indication: Complication associated with device
     Dosage: UNK (POTASSIUM CHLORIDE 15%, 2 MEQ K+/ML)
     Route: 065
     Dates: start: 20200425, end: 20200622
  32. POTASSIUM CHLORIDE [Concomitant]
     Active Substance: POTASSIUM CHLORIDE
     Indication: Fall
  33. Ketonal [Concomitant]
     Indication: Complication associated with device
     Dosage: UNK
     Route: 065
     Dates: start: 20200425, end: 20200622
  34. Ketonal [Concomitant]
     Indication: Fall
  35. LIDOCAINE HYDROCHLORIDE [Concomitant]
     Active Substance: LIDOCAINE HYDROCHLORIDE
     Indication: Complication associated with device
     Dosage: UNK
     Route: 042
     Dates: start: 20200425, end: 20200622
  36. LIDOCAINE HYDROCHLORIDE [Concomitant]
     Active Substance: LIDOCAINE HYDROCHLORIDE
     Indication: Fall
  37. MARCAINE [Concomitant]
     Active Substance: BUPIVACAINE HYDROCHLORIDE
     Indication: Complication associated with device
     Dosage: UNK
     Route: 065
     Dates: start: 20200425, end: 20200622
  38. MARCAINE [Concomitant]
     Active Substance: BUPIVACAINE HYDROCHLORIDE
     Indication: Fall
  39. SODIUM CHLORIDE [Concomitant]
     Active Substance: SODIUM CHLORIDE
     Indication: Complication associated with device
     Dosage: UNK
     Route: 042
     Dates: start: 20200425, end: 20200622
  40. SODIUM CHLORIDE [Concomitant]
     Active Substance: SODIUM CHLORIDE
     Indication: Fall
  41. ACETAMINOPHEN [Concomitant]
     Active Substance: ACETAMINOPHEN
     Indication: Complication associated with device
     Dosage: UNK (PARACETAMOL BRAUN 1G/100ML)
     Route: 065
     Dates: start: 20200425, end: 20200622
  42. ACETAMINOPHEN [Concomitant]
     Active Substance: ACETAMINOPHEN
     Indication: Fall
  43. CALCIUM CHLORIDE\MAGNESIUM CHLORIDE\POTASSIUM CHLORIDE\SODIUM ACETATE\ [Concomitant]
     Active Substance: CALCIUM CHLORIDE\MAGNESIUM CHLORIDE\POTASSIUM CHLORIDE\SODIUM ACETATE\SODIUM CHLORIDE\SODIUM CITRATE
     Indication: Complication associated with device
     Dosage: UNK
     Route: 042
     Dates: start: 20200425, end: 20200622
  44. CALCIUM CHLORIDE\MAGNESIUM CHLORIDE\POTASSIUM CHLORIDE\SODIUM ACETATE\ [Concomitant]
     Active Substance: CALCIUM CHLORIDE\MAGNESIUM CHLORIDE\POTASSIUM CHLORIDE\SODIUM ACETATE\SODIUM CHLORIDE\SODIUM CITRATE
     Indication: Fall
  45. PREFAXINE [Concomitant]
     Indication: Complication associated with device
     Dosage: UNK
     Route: 065
     Dates: start: 20200425, end: 20200622
  46. PREFAXINE [Concomitant]
     Indication: Fall
  47. PROPOFOL [Concomitant]
     Active Substance: PROPOFOL
     Indication: Complication associated with device
     Dosage: PROPOFOL 1% MCT/LCT
     Route: 042
     Dates: start: 20200425, end: 20200622
  48. PROPOFOL [Concomitant]
     Active Substance: PROPOFOL
     Indication: Fall
  49. OLANZAPINE [Concomitant]
     Active Substance: OLANZAPINE
     Indication: Complication associated with device
     Dosage: 10 MG
     Route: 065
     Dates: start: 20200425, end: 20200622
  50. OLANZAPINE [Concomitant]
     Active Substance: OLANZAPINE
     Indication: Fall
  51. OLANZAPINE [Concomitant]
     Active Substance: OLANZAPINE
     Indication: Complication associated with device
     Dosage: 5 MG
     Route: 065
     Dates: start: 20200425, end: 20200622
  52. OLANZAPINE [Concomitant]
     Active Substance: OLANZAPINE
     Indication: Fall
  53. SERTRALINE HYDROCHLORIDE [Concomitant]
     Active Substance: SERTRALINE HYDROCHLORIDE
     Indication: Complication associated with device
     Dosage: 50 MG
     Route: 065
     Dates: start: 20200425, end: 20200622
  54. SERTRALINE HYDROCHLORIDE [Concomitant]
     Active Substance: SERTRALINE HYDROCHLORIDE
     Indication: Fall
  55. FERROUS SULFATE [Concomitant]
     Active Substance: FERROUS SULFATE
     Indication: Complication associated with device
     Dosage: 80 MG
     Route: 065
     Dates: start: 20200425, end: 20200622
  56. FERROUS SULFATE [Concomitant]
     Active Substance: FERROUS SULFATE
     Indication: Fall
  57. TELMISARTAN EGIS [Concomitant]
     Indication: Complication associated with device
     Dosage: 80 MG
     Route: 065
     Dates: start: 20200425, end: 20200622
  58. TELMISARTAN EGIS [Concomitant]
     Indication: Fall
  59. TRAZODONE HYDROCHLORIDE [Concomitant]
     Active Substance: TRAZODONE HYDROCHLORIDE
     Indication: Complication associated with device
     Dosage: 75 MG
     Route: 065
     Dates: start: 20200425, end: 20200622
  60. TRAZODONE HYDROCHLORIDE [Concomitant]
     Active Substance: TRAZODONE HYDROCHLORIDE
     Indication: Fall

REACTIONS (1)
  - Pancytopenia [Recovered/Resolved]

NARRATIVE: CASE EVENT DATE: 20200622
